FAERS Safety Report 18160417 (Version 1)
Quarter: 2020Q3

REPORT INFORMATION
  Report Type: Spontaneous
  Country: US (occurrence: US)
  Receive Date: 20200818
  Receipt Date: 20200818
  Transmission Date: 20201103
  Serious: No
  Sender: FDA-Public Use
  Company Number: US-BIOGEN-2019BI00761462

PATIENT
  Age: 51 Year
  Sex: Female

DRUGS (2)
  1. TECFIDERA [Suspect]
     Active Substance: DIMETHYL FUMARATE
     Indication: MULTIPLE SCLEROSIS
     Route: 048
     Dates: start: 20170921
  2. TECFIDERA [Suspect]
     Active Substance: DIMETHYL FUMARATE
     Route: 048

REACTIONS (20)
  - Weight decreased [Unknown]
  - Musculoskeletal disorder [Unknown]
  - Dysstasia [Recovered/Resolved]
  - Stress [Recovered/Resolved]
  - Retinopathy [Unknown]
  - Hypoacusis [Unknown]
  - Myofascial pain syndrome [Unknown]
  - Amnesia [Unknown]
  - Pain [Recovered/Resolved]
  - Muscle tightness [Recovered/Resolved]
  - Migraine with aura [Unknown]
  - Muscle spasms [Unknown]
  - Memory impairment [Unknown]
  - Wrist fracture [Unknown]
  - Fall [Recovered/Resolved]
  - Myalgia [Recovered/Resolved]
  - Irritable bowel syndrome [Unknown]
  - Sleep terror [Unknown]
  - Product dose omission issue [Unknown]
  - Hypoaesthesia [Unknown]

NARRATIVE: CASE EVENT DATE: 201910
